FAERS Safety Report 14364753 (Version 1)
Quarter: 2018Q1

REPORT INFORMATION
  Report Type: Spontaneous
  Country: US (occurrence: US)
  Receive Date: 20180106
  Receipt Date: 20180106
  Transmission Date: 20180509
  Serious: Yes (Disabling)
  Sender: FDA-Public Use
  Company Number: None

PATIENT
  Age: 59 Year
  Sex: Female
  Weight: 135 kg

DRUGS (2)
  1. INVEGA [Concomitant]
     Active Substance: PALIPERIDONE
  2. RISPERIDONE 2MG [Suspect]
     Active Substance: RISPERIDONE
     Route: 048
     Dates: start: 20140117

REACTIONS (8)
  - Peripheral swelling [None]
  - Therapy change [None]
  - Abdominal discomfort [None]
  - Joint swelling [None]
  - Weight increased [None]
  - Hypersomnia [None]
  - Breast enlargement [None]
  - Movement disorder [None]

NARRATIVE: CASE EVENT DATE: 20170217
